FAERS Safety Report 8112965-5 (Version None)
Quarter: 2012Q1

REPORT INFORMATION
  Report Type: 
  Country: None (occurrence: None)
  Receive Date: 20120203
  Receipt Date: 20120125
  Transmission Date: 20120608
  Serious: Yes (Other)
  Sender: FDA-Public Use
  Company Number: JP-SANOFI-AVENTIS-2012SA006631

PATIENT
  Age: 55 Year
  Sex: Female
  Weight: 65 kg

DRUGS (13)
  1. CALCIUM CARBONATE [Concomitant]
  2. FERROUS SULFATE TAB [Concomitant]
  3. SEVELAMER HYDROCHLORIDE [Concomitant]
  4. AMLODIPINE BESYLATE [Suspect]
     Indication: GASTRIC ULCER
     Route: 048
     Dates: start: 20040501
  5. ERYTHROPOIETIN HUMAN [Concomitant]
     Dosage: DOSE REDUCED
  6. VALSARTAN [Concomitant]
  7. ALFACALCIDOL [Concomitant]
  8. AZULENE SODIUM SULFONATE [Concomitant]
  9. ERYTHROPOIETIN HUMAN [Concomitant]
  10. FUROSEMIDE [Suspect]
     Route: 048
     Dates: start: 20040501
  11. FUROSEMIDE [Suspect]
     Indication: GASTRIC ULCER
     Route: 048
     Dates: start: 20040501
  12. AMLODIPINE BESYLATE [Suspect]
     Route: 048
     Dates: start: 20040501
  13. ERYTHROPOIETIN HUMAN [Concomitant]

REACTIONS (4)
  - DECREASED APPETITE [None]
  - HAEMOGLOBIN DECREASED [None]
  - ANAEMIA [None]
  - ZINC DEFICIENCY [None]
